FAERS Safety Report 13121142 (Version 1)
Quarter: 2017Q1

REPORT INFORMATION
  Report Type: Spontaneous
  Country: US (occurrence: US)
  Receive Date: 20170113
  Receipt Date: 20170113
  Transmission Date: 20170428
  Serious: No
  Sender: FDA-Public Use
  Company Number: None

PATIENT
  Age: 36 Year
  Sex: Female
  Weight: 84.1 kg

DRUGS (4)
  1. LEVOCETIRIZINE [Concomitant]
     Active Substance: LEVOCETIRIZINE
  2. LEVOFLOXACIN 500 MG [Suspect]
     Active Substance: LEVOFLOXACIN
     Indication: LOWER RESPIRATORY TRACT INFECTION
     Dosage: QUANTITY:7 TABLET(S); DAILY; ORAL?
     Route: 048
     Dates: start: 20170105, end: 20170111
  3. PROAIR HFA [Concomitant]
     Active Substance: ALBUTEROL SULFATE
  4. LILETTA [Concomitant]
     Active Substance: LEVONORGESTREL

REACTIONS (2)
  - Dizziness [None]
  - Vertigo [None]

NARRATIVE: CASE EVENT DATE: 20170106
